FAERS Safety Report 9235168 (Version 2)
Quarter: 2013Q2

REPORT INFORMATION
  Report Type: Spontaneous
  Country: US (occurrence: US)
  Receive Date: 20130417
  Receipt Date: 20130523
  Transmission Date: 20140414
  Serious: Yes (Hospitalization)
  Sender: FDA-Public Use
  Company Number: US-AMGEN-USASP2013025812

PATIENT
  Age: 57 Year
  Sex: Male

DRUGS (3)
  1. ENBREL [Suspect]
     Indication: JUVENILE IDIOPATHIC ARTHRITIS
     Dosage: 50 MG, QWK
     Dates: start: 2011, end: 201211
  2. METHOTREXATE [Concomitant]
     Dosage: 7.5 MG, UNK
     Route: 048
     Dates: start: 2010, end: 201211
  3. HYDROXYCHLOROQUINE [Concomitant]
     Dosage: 200 MG, BID
     Route: 048

REACTIONS (10)
  - Fall [Recovered/Resolved]
  - Back injury [Recovered/Resolved]
  - Balance disorder [Recovered/Resolved]
  - Nerve compression [Recovered/Resolved]
  - Mobility decreased [Not Recovered/Not Resolved]
  - Constipation [Not Recovered/Not Resolved]
  - Decreased appetite [Not Recovered/Not Resolved]
  - Ageusia [Not Recovered/Not Resolved]
  - White blood cell count decreased [Not Recovered/Not Resolved]
  - Motor dysfunction [Recovered/Resolved]
